FAERS Safety Report 24837352 (Version 1)
Quarter: 2025Q1

REPORT INFORMATION
  Report Type: Spontaneous
  Country: IN (occurrence: IN)
  Receive Date: 20250113
  Receipt Date: 20250113
  Transmission Date: 20250409
  Serious: Yes (Life-Threatening, Hospitalization, Other)
  Sender: PFIZER
  Company Number: IN-PFIZER INC-202500004253

PATIENT
  Sex: Male

DRUGS (8)
  1. MEROPENEM [Suspect]
     Active Substance: MEROPENEM
     Indication: Acute kidney injury
     Dosage: 1 G, 3X/DAY
     Route: 064
  2. TEICOPLANIN [Suspect]
     Active Substance: TEICOPLANIN
     Indication: Acute kidney injury
     Dosage: 400 MG, DAILY
     Route: 064
  3. SODIUM CHLORIDE [Suspect]
     Active Substance: SODIUM CHLORIDE
     Indication: Acute kidney injury
     Dosage: 50 ML, 3X/DAY
     Route: 064
  4. ONDANSETRON [Suspect]
     Active Substance: ONDANSETRON
     Indication: Acute kidney injury
     Route: 064
  5. PANTOPRAZOLE [Suspect]
     Active Substance: PANTOPRAZOLE
     Indication: Acute kidney injury
     Route: 064
  6. VITAMIN K [Suspect]
     Active Substance: PHYTONADIONE
     Indication: Acute kidney injury
  7. ACETYLCYSTEINE [Suspect]
     Active Substance: ACETYLCYSTEINE
     Indication: Acute kidney injury
     Route: 064
  8. BETAMETHASONE SODIUM PHOSPHATE [Suspect]
     Active Substance: BETAMETHASONE SODIUM PHOSPHATE
     Indication: Acute kidney injury
     Route: 064

REACTIONS (2)
  - Premature baby [Unknown]
  - Maternal exposure during pregnancy [Unknown]
